FAERS Safety Report 4862607-7 (Version None)
Quarter: 2005Q4

REPORT INFORMATION
  Report Type: 
  Country: None (occurrence: None)
  Receive Date: 20051221
  Receipt Date: 20051202
  Transmission Date: 20060501
  Serious: Yes (Hospitalization)
  Sender: FDA-Public Use
  Company Number: US-ROCHE-427236

PATIENT
  Age: 62 Year
  Sex: Female

DRUGS (4)
  1. CAPECITABINE [Suspect]
     Indication: GASTROINTESTINAL CANCER METASTATIC
     Dosage: FOR 14 DAYS EVERY 21 DAYS
     Route: 065
     Dates: start: 20020830, end: 20030313
  2. CAPECITABINE [Suspect]
     Dosage: TAKEN TWICE DAILY. FOR 14 DAYS EVERY 21 DAYS
     Route: 065
     Dates: start: 20041015
  3. GEMCITABINE [Suspect]
     Indication: GASTROINTESTINAL CANCER METASTATIC
     Dosage: ON DAYS 1 AND 8 OF EACH THREE WEEK CYCLE
     Route: 065
     Dates: start: 20020830, end: 20030313
  4. FUDR [Concomitant]
     Route: 013
     Dates: start: 20030415, end: 20030815

REACTIONS (3)
  - CATHETER RELATED INFECTION [None]
  - METASTASES TO LIVER [None]
  - MYELOPATHY [None]
